FAERS Safety Report 9228710 (Version 1)
Quarter: 2013Q2

REPORT INFORMATION
  Report Type: Spontaneous
  Country: CH (occurrence: CH)
  Receive Date: 20130412
  Receipt Date: 20130412
  Transmission Date: 20140414
  Serious: Yes (Death, Life-Threatening, Other)
  Sender: FDA-Public Use
  Company Number: CH-BAYER-2013-045327

PATIENT
  Age: 2 Week
  Sex: Female
  Weight: .46 kg

DRUGS (10)
  1. ASPIRIN CARDIO [Suspect]
     Indication: ESSENTIAL HYPERTENSION
     Dosage: 100 MG, QD
     Route: 064
     Dates: start: 2012
  2. ASPIRIN CARDIO [Suspect]
     Indication: ESSENTIAL HYPERTENSION
     Dosage: 100 MG, QD
     Route: 064
     Dates: start: 2012
  3. NIFEDIPINE [Suspect]
     Indication: ESSENTIAL HYPERTENSION
     Dosage: 30 MG, TID
     Route: 064
     Dates: start: 2012
  4. NIFEDIPINE [Suspect]
     Indication: ESSENTIAL HYPERTENSION
     Dosage: 30 MG, TID
     Route: 064
     Dates: start: 2012
  5. TRANDATE [Suspect]
     Indication: ESSENTIAL HYPERTENSION
     Dosage: 600 MG, TID
     Route: 064
     Dates: start: 2011, end: 20120416
  6. TRANDATE [Suspect]
     Indication: ESSENTIAL HYPERTENSION
     Dosage: 600 MG, TID
     Route: 064
     Dates: start: 2011, end: 20120416
  7. TRANDATE [Suspect]
     Indication: ESSENTIAL HYPERTENSION
     Dosage: 100 MG, UNK
     Route: 064
     Dates: start: 20120417, end: 2012
  8. TRANDATE [Suspect]
     Indication: ESSENTIAL HYPERTENSION
     Dosage: 100 MG, UNK
     Route: 064
     Dates: start: 20120417, end: 2012
  9. MAGNESII SULFAS [Concomitant]
     Dosage: UNK
     Route: 064
     Dates: start: 20120417
  10. MAGNESII SULFAS [Concomitant]
     Dosage: UNK
     Route: 064
     Dates: start: 20120417

REACTIONS (4)
  - Death neonatal [Fatal]
  - Premature baby [None]
  - Foetal exposure during pregnancy [Recovered/Resolved]
  - Foetal growth restriction [None]
